FAERS Safety Report 4370105-2 (Version None)
Quarter: 2004Q2

REPORT INFORMATION
  Report Type: 
  Country: None (occurrence: None)
  Receive Date: 20040527
  Receipt Date: 20040512
  Transmission Date: 20050107
  Serious: Yes (Hospitalization)
  Sender: FDA-Public Use
  Company Number: JP_040102533

PATIENT
  Age: 71 Year
  Sex: Male
  Weight: 48 kg

DRUGS (6)
  1. GEMZAR [Suspect]
     Indication: PANCREATIC CARCINOMA
     Dosage: 1400 MG/OTHER
     Dates: start: 20030625, end: 20031021
  2. FAMOTIDINE [Concomitant]
  3. ISOSORBIDE DINITRATE [Concomitant]
  4. SELBEX (TEPRENONE) [Concomitant]
  5. LOXONIN (LOXOPROFEN SODIUM) [Concomitant]
  6. MUCOSTA (REBAMIPIDE) [Concomitant]

REACTIONS (3)
  - PLEURISY [None]
  - STREPTOCOCCAL INFECTION [None]
  - WHITE BLOOD CELL COUNT DECREASED [None]
